FAERS Safety Report 13961319 (Version 1)
Quarter: 2017Q3

REPORT INFORMATION
  Report Type: Spontaneous
  Country: US (occurrence: None)
  Receive Date: 20170912
  Receipt Date: 20170912
  Transmission Date: 20171128
  Serious: Yes (Hospitalization)
  Sender: FDA-Public Use
  Company Number: None

PATIENT
  Age: 72 Year
  Sex: Female
  Weight: 113.4 kg

DRUGS (10)
  1. AMLODIPINE [Concomitant]
     Active Substance: AMLODIPINE BESYLATE
  2. LVOTHYROXINE [Concomitant]
  3. MONTELUKAST [Concomitant]
     Active Substance: MONTELUKAST SODIUM
  4. DOFETILIDE 500MCG (TWICE DAILY) TAKE ONE CAPSULE EVERY 12 HOURS [Suspect]
     Active Substance: DOFETILIDE
     Indication: ATRIAL FIBRILLATION
     Route: 048
     Dates: start: 20161028, end: 20170814
  5. LOSARTAN. [Concomitant]
     Active Substance: LOSARTAN
  6. ABUTEROL/BUDESONIDE [Concomitant]
  7. HYDRALAZINE [Concomitant]
     Active Substance: HYDRALAZINE HYDROCHLORIDE
  8. WARFARIN [Concomitant]
     Active Substance: WARFARIN
  9. MAG OXIDE [Concomitant]
     Active Substance: MAGNESIUM OXIDE
  10. CALCIUM/VITAMIN D3 [Concomitant]

REACTIONS (3)
  - Diarrhoea [None]
  - Haematochezia [None]
  - Vomiting [None]

NARRATIVE: CASE EVENT DATE: 20170812
